FAERS Safety Report 22387972 (Version 1)
Quarter: 2023Q2

REPORT INFORMATION
  Report Type: Spontaneous
  Country: GB (occurrence: GB)
  Receive Date: 20230531
  Receipt Date: 20230531
  Transmission Date: 20230722
  Serious: Yes (Hospitalization, Other)
  Sender: FDA-Public Use
  Company Number: None

PATIENT
  Sex: Male
  Weight: 106 kg

DRUGS (7)
  1. APIXABAN [Suspect]
     Active Substance: APIXABAN
     Indication: Product used for unknown indication
     Dates: end: 20220518
  2. ATORVASTATIN [Concomitant]
     Active Substance: ATORVASTATIN
  3. FAMOTIDINE [Concomitant]
     Active Substance: FAMOTIDINE
  4. FLUTICASONE [Concomitant]
     Active Substance: FLUTICASONE
  5. SALMETEROL [Concomitant]
     Active Substance: SALMETEROL
  6. FUROSEMIDE [Concomitant]
     Active Substance: FUROSEMIDE
  7. METHENAMINE [Concomitant]
     Active Substance: METHENAMINE

REACTIONS (1)
  - Infectious pleural effusion [Recovering/Resolving]

NARRATIVE: CASE EVENT DATE: 20220501
